APPROVED DRUG PRODUCT: ELIQUIS SPRINKLE
Active Ingredient: APIXABAN
Strength: 0.15MG
Dosage Form/Route: FOR SUSPENSION;ORAL
Application: N220073 | Product #001
Applicant: BRISTOL MYERS SQUIBB CO
Approved: Apr 17, 2025 | RLD: Yes | RS: Yes | Type: RX

PATENTS:
Patent 11896586 | Expires: Nov 22, 2040
Patent 6967208 | Expires: Nov 21, 2026
Patent 6967208*PED | Expires: May 21, 2027
Patent 11896586*PED | Expires: May 22, 2041

EXCLUSIVITY:
Code: NP | Date: Apr 17, 2028
Code: PED | Date: Oct 17, 2028